FAERS Safety Report 9702333 (Version 1)
Quarter: 2013Q4

REPORT INFORMATION
  Report Type: Spontaneous
  Country: US (occurrence: None)
  Receive Date: 20131119
  Receipt Date: 20131119
  Transmission Date: 20140711
  Serious: Yes (Life-Threatening, Hospitalization)
  Sender: FDA-Public Use
  Company Number: 2013P1020855

PATIENT
  Age: 34 None
  Sex: Male

DRUGS (2)
  1. PROPRANOLOL [Suspect]
     Route: 048
  2. DOXAZOSIN [Suspect]
     Route: 048

REACTIONS (8)
  - Lethargy [None]
  - Bradycardia [None]
  - Hypotension [None]
  - Dialysis [None]
  - Renal failure [None]
  - Shock [None]
  - Circulatory collapse [None]
  - Overdose [None]
